FAERS Safety Report 14788080 (Version 1)
Quarter: 2018Q2

REPORT INFORMATION
  Report Type: Spontaneous
  Country: US (occurrence: US)
  Receive Date: 20180422
  Receipt Date: 20180422
  Transmission Date: 20180711
  Serious: No
  Sender: FDA-Public Use
  Company Number: US-009507513-1803USA010135

PATIENT
  Sex: Male

DRUGS (3)
  1. SOFOSBUVIR [Concomitant]
     Active Substance: SOFOSBUVIR
  2. VELPATASVIR [Concomitant]
     Active Substance: VELPATASVIR
  3. REBETOL [Suspect]
     Active Substance: RIBAVIRIN

REACTIONS (1)
  - Adverse event [Unknown]
